FAERS Safety Report 18257944 (Version 7)
Quarter: 2020Q4

REPORT INFORMATION
  Report Type: Report from Study
  Country: AR (occurrence: AR)
  Receive Date: 20200911
  Receipt Date: 20201104
  Transmission Date: 20210113
  Serious: Yes (Hospitalization)
  Sender: FDA-Public Use
  Company Number: AR-WORLDWIDE CLINICAL TRIALS-2020-AR-000434

PATIENT
  Age: 54 Year
  Sex: Male
  Weight: 69 kg

DRUGS (7)
  1. PARACETAMOL [Concomitant]
     Active Substance: ACETAMINOPHEN
     Indication: ANALGESIC THERAPY
     Dosage: 1 GRAM, Q12H
     Route: 048
     Dates: start: 20200608, end: 20200829
  2. TRAMADOL. [Concomitant]
     Active Substance: TRAMADOL
     Indication: ABDOMINAL PAIN
     Dosage: 50 MILLIGRAM, Q6H
     Route: 048
     Dates: start: 20200608, end: 20200829
  3. VALSARTAN. [Concomitant]
     Active Substance: VALSARTAN
     Indication: HYPERTENSION
     Dosage: 320 MILLIGRAM, QD
     Route: 048
     Dates: start: 201705, end: 20200829
  4. ETORICOXIB. [Concomitant]
     Active Substance: ETORICOXIB
     Indication: ANALGESIC THERAPY
     Dosage: 90 MILLIGRAM, Q12H
     Route: 048
     Dates: start: 20200720, end: 20200829
  5. DCC-2618 [Suspect]
     Active Substance: RIPRETINIB
     Dosage: 100 MILLIGRAM, QD
     Route: 048
     Dates: start: 20200922, end: 20201003
  6. DCC-2618 [Suspect]
     Active Substance: RIPRETINIB
     Indication: GASTROINTESTINAL STROMAL TUMOUR
     Dosage: 150 MILLIGRAM, QD
     Route: 048
     Dates: start: 20200813, end: 20200829
  7. RANITIDINE. [Concomitant]
     Active Substance: RANITIDINE
     Indication: GASTRITIS
     Dosage: 150 MILLIGRAM, Q12H
     Route: 048
     Dates: start: 20200813, end: 20200829

REACTIONS (1)
  - Encephalopathy [Recovered/Resolved]

NARRATIVE: CASE EVENT DATE: 20200901
